FAERS Safety Report 9154016 (Version 1)
Quarter: 2013Q1

REPORT INFORMATION
  Report Type: Spontaneous
  Country: US (occurrence: None)
  Receive Date: 20130306
  Receipt Date: 20130306
  Transmission Date: 20140127
  Serious: No
  Sender: FDA-Public Use
  Company Number: None

PATIENT
  Age: 57 Year
  Sex: Male

DRUGS (4)
  1. XTANDI 40MG ASTELLAS [Suspect]
     Indication: PROSTATE CANCER
     Route: 048
     Dates: start: 20121212, end: 20130301
  2. REGLAN [Concomitant]
  3. TYLENOL [Concomitant]
  4. AMBIEN [Concomitant]

REACTIONS (2)
  - Disease progression [None]
  - Drug ineffective [None]
